FAERS Safety Report 25820052 (Version 2)
Quarter: 2025Q4

REPORT INFORMATION
  Report Type: Report from Study
  Country: US (occurrence: US)
  Receive Date: 20250918
  Receipt Date: 20251007
  Transmission Date: 20260117
  Serious: Yes (Other)
  Sender: BIOGEN
  Company Number: US-BIOGEN-2025BI01324138

PATIENT
  Sex: Male

DRUGS (3)
  1. TYSABRI [Suspect]
     Active Substance: NATALIZUMAB
     Indication: Multiple sclerosis
     Route: 050
     Dates: start: 20140221, end: 20200207
  2. TYSABRI [Suspect]
     Active Substance: NATALIZUMAB
     Route: 050
     Dates: start: 20210924, end: 20221220
  3. TYSABRI [Suspect]
     Active Substance: NATALIZUMAB
     Route: 050
     Dates: start: 20231214

REACTIONS (8)
  - Blindness [Not Recovered/Not Resolved]
  - Incontinence [Not Recovered/Not Resolved]
  - Gait inability [Not Recovered/Not Resolved]
  - Abnormal behaviour [Unknown]
  - Patient elopement [Unknown]
  - Cognitive disorder [Unknown]
  - Anal incontinence [Unknown]
  - Urinary incontinence [Unknown]
